FAERS Safety Report 5173749-3 (Version None)
Quarter: 2006Q4

REPORT INFORMATION
  Report Type: 
  Country: None (occurrence: None)
  Receive Date: 20061208
  Receipt Date: 20061208
  Transmission Date: 20070319
  Serious: Yes (Death)
  Sender: FDA-Public Use
  Company Number: None

PATIENT
  Weight: 78.9259 kg

DRUGS (1)
  1. CETUXIMAB 400MG/M2 [Suspect]
     Indication: OESOPHAGEAL CARCINOMA
     Dosage: 400MG/M2 WEEKLY IV
     Route: 042
     Dates: start: 20060807, end: 20060912

REACTIONS (1)
  - DISEASE PROGRESSION [None]
